FAERS Safety Report 16837662 (Version 1)
Quarter: 2019Q3

REPORT INFORMATION
  Report Type: Spontaneous
  Country: US (occurrence: US)
  Receive Date: 20190923
  Receipt Date: 20190923
  Transmission Date: 20191005
  Serious: Yes (Other)
  Sender: FDA-Public Use
  Company Number: US-PACIRA-201900297

PATIENT

DRUGS (1)
  1. EXPAREL [Suspect]
     Active Substance: BUPIVACAINE
     Indication: NERVE BLOCK
     Dosage: 20-ML OF LIPOSOMAL BUPIVACAINE WITH 50-ML OF NORMAL SALINE, TOTAL OF 70-ML

REACTIONS (6)
  - Gastrointestinal haemorrhage [Unknown]
  - Atelectasis [Unknown]
  - Ileus [Unknown]
  - Atrial fibrillation [Unknown]
  - Transfusion [Unknown]
  - Renal failure [Unknown]
